FAERS Safety Report 8388304-1 (Version None)
Quarter: 2012Q2

REPORT INFORMATION
  Report Type: 
  Country: None (occurrence: None)
  Receive Date: 20120525
  Receipt Date: 20120515
  Transmission Date: 20120825
  Serious: Yes (Hospitalization, Disabling, Other)
  Sender: FDA-Public Use
  Company Number: US-MYLANLABS-2009AC000109

PATIENT
  Sex: Female
  Weight: 70.31 kg

DRUGS (27)
  1. DIGOXIN [Suspect]
     Route: 048
     Dates: start: 20061121, end: 20090130
  2. ZITHROMAX [Concomitant]
     Dosage: FOR THREE DAYS
  3. LISINOPRIL [Concomitant]
     Route: 048
  4. LIPITOR [Concomitant]
     Route: 048
  5. ASPIRIN [Concomitant]
  6. DYAZIDE [Concomitant]
     Route: 048
  7. LEVOTHYROXINE SODIUM [Concomitant]
  8. PROAIR HFA [Concomitant]
  9. AMOXICILLIN AND CLAVULANATE POTASSIUM [Concomitant]
  10. CARAFATE [Concomitant]
  11. SYNTHROID [Concomitant]
  12. EXCEDRIN (MIGRAINE) [Concomitant]
  13. PROTONIX [Concomitant]
  14. FISH OIL [Concomitant]
  15. SUDAFED 12 HOUR [Concomitant]
  16. PEPCID [Concomitant]
  17. AMIODARONE HCL [Concomitant]
     Route: 048
  18. LEVAQUIN [Concomitant]
     Dosage: FOR SEVEN DAYS
  19. MECLIZINE [Concomitant]
  20. TRIAMTERENE [Concomitant]
  21. CIPROFLOXACIN [Concomitant]
  22. ATENOLOL [Concomitant]
  23. PROMETHAZINE DM [Concomitant]
  24. ACYCLOVIR [Concomitant]
  25. LIDODERM [Concomitant]
  26. COUMADIN [Concomitant]
  27. ZOFRAN [Concomitant]

REACTIONS (60)
  - PNEUMONIA [None]
  - DIZZINESS [None]
  - HEADACHE [None]
  - ATRIAL FIBRILLATION [None]
  - LEFT VENTRICULAR HYPERTROPHY [None]
  - BACK PAIN [None]
  - CARDIOACTIVE DRUG LEVEL INCREASED [None]
  - COMPUTERISED TOMOGRAM ABNORMAL [None]
  - FALL [None]
  - HYPOAESTHESIA [None]
  - OBESITY [None]
  - GENERAL PHYSICAL CONDITION ABNORMAL [None]
  - PHYSICAL DISABILITY [None]
  - HYPERTENSION [None]
  - ECHOCARDIOGRAM ABNORMAL [None]
  - NAUSEA [None]
  - NECK PAIN [None]
  - OSTEOARTHRITIS [None]
  - VENTRICULAR EXTRASYSTOLES [None]
  - WEIGHT DECREASED [None]
  - INJURY [None]
  - BRADYCARDIA [None]
  - DEAFNESS NEUROSENSORY [None]
  - HEART RATE INCREASED [None]
  - NUCLEAR MAGNETIC RESONANCE IMAGING ABNORMAL [None]
  - MUSCLE SPASMS [None]
  - SPINAL OSTEOARTHRITIS [None]
  - ILL-DEFINED DISORDER [None]
  - RENAL FAILURE ACUTE [None]
  - BALANCE DISORDER [None]
  - GAIT DISTURBANCE [None]
  - MYALGIA [None]
  - OCULAR DYSMETRIA [None]
  - PAIN IN EXTREMITY [None]
  - PERIPHERAL VASCULAR DISORDER [None]
  - PAIN [None]
  - BLINDNESS [None]
  - ASTHMA [None]
  - BRONCHITIS [None]
  - INTRAOCULAR LENS IMPLANT [None]
  - MALIGNANT MYOPIA [None]
  - LIVER FUNCTION TEST ABNORMAL [None]
  - TACHYCARDIA [None]
  - ECONOMIC PROBLEM [None]
  - HYPERLIPIDAEMIA [None]
  - EYE SWELLING [None]
  - PALPITATIONS [None]
  - LABORATORY TEST ABNORMAL [None]
  - TOXICITY TO VARIOUS AGENTS [None]
  - GASTROOESOPHAGEAL REFLUX DISEASE [None]
  - SUBDURAL HAEMATOMA [None]
  - ARTHRITIS [None]
  - VITREOUS DETACHMENT [None]
  - MITRAL VALVE INCOMPETENCE [None]
  - PLEURAL EFFUSION [None]
  - ATAXIA [None]
  - DYSPNOEA [None]
  - ELECTROCARDIOGRAM ABNORMAL [None]
  - VERTIGO [None]
  - VOMITING [None]
